FAERS Safety Report 26181860 (Version 1)
Quarter: 2025Q4

REPORT INFORMATION
  Report Type: Spontaneous
  Country: US (occurrence: US)
  Receive Date: 20251221
  Receipt Date: 20251221
  Transmission Date: 20260117
  Serious: Yes (Life-Threatening, Hospitalization)
  Sender: ABBVIE
  Company Number: US-MLMSERVICE-20251204-PI738032-00102-1

PATIENT
  Age: 40 Year

DRUGS (2)
  1. CITALOPRAM [Interacting]
     Active Substance: CITALOPRAM
     Indication: Product used for unknown indication
     Route: 065
  2. METHADONE [Interacting]
     Active Substance: METHADONE HYDROCHLORIDE
     Indication: Drug use disorder
     Route: 065

REACTIONS (8)
  - Respiratory failure [Recovering/Resolving]
  - Cardiac arrest [Recovering/Resolving]
  - Serotonin syndrome [Recovering/Resolving]
  - Electrocardiogram QT prolonged [Recovering/Resolving]
  - Drug interaction [Recovering/Resolving]
  - Torsade de pointes [Recovering/Resolving]
  - Encephalopathy [Recovering/Resolving]
  - Brain injury [Recovering/Resolving]
